FAERS Safety Report 24320758 (Version 1)
Quarter: 2024Q3

REPORT INFORMATION
  Report Type: Report from Study
  Country: US (occurrence: US)
  Receive Date: 20240915
  Receipt Date: 20240915
  Transmission Date: 20241016
  Serious: No
  Sender: ALEXION PHARMACEUTICALS
  Company Number: US-AstraZeneca-CH-00705056A

PATIENT
  Sex: Female

DRUGS (1)
  1. STRENSIQ [Suspect]
     Active Substance: ASFOTASE ALFA
     Indication: Hypophosphatasia
     Dosage: 90 MILLIGRAM, SIX TIMES/WEEK
     Route: 042

REACTIONS (3)
  - Brain fog [Not Recovered/Not Resolved]
  - Weight decreased [Unknown]
  - Weight fluctuation [Unknown]
